FAERS Safety Report 10283801 (Version 2)
Quarter: 2014Q3

REPORT INFORMATION
  Report Type: Spontaneous
  Country: US (occurrence: None)
  Receive Date: 20140703
  Receipt Date: 20140714
  Transmission Date: 20150326
  Serious: Yes (Hospitalization)
  Sender: FDA-Public Use
  Company Number: UNT-2014-002809

PATIENT
  Age: 44 Year
  Sex: Female
  Weight: 78.9 kg

DRUGS (4)
  1. REVATIO (SILDENAFIL CITRATE) [Concomitant]
  2. REMODULIN [Suspect]
     Active Substance: TREPROSTINIL
     Indication: CONNECTIVE TISSUE DISORDER
     Dosage: 0.026 UG/KG, CONTINUING, SUBCUTANEOUS
     Route: 058
     Dates: start: 20130927
  3. REMODULIN [Suspect]
     Active Substance: TREPROSTINIL
     Indication: COR PULMONALE CHRONIC
     Dosage: 0.026 UG/KG, CONTINUING, SUBCUTANEOUS
     Route: 058
     Dates: start: 20130927
  4. REMODULIN [Suspect]
     Active Substance: TREPROSTINIL
     Indication: PULMONARY ARTERIAL HYPERTENSION
     Dosage: 0.026 UG/KG, CONTINUING, SUBCUTANEOUS
     Route: 058
     Dates: start: 20130927

REACTIONS (2)
  - Cellulitis [None]
  - Dyspnoea [None]
